FAERS Safety Report 9767448 (Version 2)
Quarter: 2014Q1

REPORT INFORMATION
  Report Type: Report from Study
  Country: BR (occurrence: BR)
  Receive Date: 20131217
  Receipt Date: 20140128
  Transmission Date: 20141002
  Serious: Yes (Other)
  Sender: FDA-Public Use
  Company Number: PHHY2013BR145108

PATIENT
  Sex: Male

DRUGS (1)
  1. EXELON [Suspect]
     Dosage: UNK UKN, UNK

REACTIONS (7)
  - Cerebrovascular accident [Unknown]
  - Dementia Alzheimer^s type [Unknown]
  - Regressive behaviour [Unknown]
  - Aggression [Unknown]
  - Abnormal behaviour [Unknown]
  - General physical health deterioration [Unknown]
  - Drug ineffective [Unknown]
